FAERS Safety Report 15040812 (Version 2)
Quarter: 2018Q3

REPORT INFORMATION
  Report Type: Spontaneous
  Country: SE (occurrence: SE)
  Receive Date: 20180620
  Receipt Date: 20180810
  Transmission Date: 20181010
  Serious: Yes (Other)
  Sender: FDA-Public Use
  Company Number: SE-BEH-2018091759

PATIENT
  Age: 87 Year
  Sex: Male
  Weight: 80 kg

DRUGS (6)
  1. PLATELETS [Concomitant]
     Active Substance: HUMAN PLATELET, ALLOGENIC
     Indication: HAEMORRHAGE
     Dosage: 1 DF, SINGLE
     Route: 042
     Dates: start: 20180527
  2. CONFIDEX [Suspect]
     Active Substance: COAGULATION FACTOR IX HUMAN\COAGULATION FACTOR VII HUMAN\COAGULATION FACTOR X HUMAN\PROTEIN C\PROTEIN S HUMAN\PROTHROMBIN
     Indication: GASTROINTESTINAL HAEMORRHAGE
     Dosage: 1500 DF, TOT
     Route: 065
     Dates: start: 20180529, end: 20180529
  3. CYKLOKAPRON [Concomitant]
     Active Substance: TRANEXAMIC ACID
     Dosage: 10 MG/KG, UNK
     Route: 042
  4. WARAN [Concomitant]
     Active Substance: WARFARIN SODIUM
     Indication: PULMONARY EMBOLISM
     Dosage: UNK, 10/WEEK
     Route: 048
     Dates: start: 2013, end: 20180529
  5. CONFIDEX [Suspect]
     Active Substance: COAGULATION FACTOR IX HUMAN\COAGULATION FACTOR VII HUMAN\COAGULATION FACTOR X HUMAN\PROTEIN C\PROTEIN S HUMAN\PROTHROMBIN
     Indication: DIVERTICULUM INTESTINAL HAEMORRHAGIC
  6. BLOOD, WHOLE [Concomitant]
     Active Substance: WHOLE BLOOD
     Indication: ANAEMIA
     Dosage: 6 DF, UNK
     Route: 042
     Dates: start: 20180527, end: 20180529

REACTIONS (3)
  - Confusional state [Not Recovered/Not Resolved]
  - Embolic stroke [Not Recovered/Not Resolved]
  - Aphasia [Not Recovered/Not Resolved]

NARRATIVE: CASE EVENT DATE: 20180529
